FAERS Safety Report 16709617 (Version 4)
Quarter: 2019Q4

REPORT INFORMATION
  Report Type: Other
  Country: GB (occurrence: GB)
  Receive Date: 20190816
  Receipt Date: 20191022
  Transmission Date: 20200122
  Serious: Yes (Death, Other)
  Sender: FDA-Public Use
  Company Number: GB-ASTELLAS-2019US032865

PATIENT
  Age: 14 Year
  Sex: Male

DRUGS (23)
  1. ISAVUCONAZOLE [Suspect]
     Active Substance: ISAVUCONAZOLE
     Dosage: UNK UNK, UNKNOWN FREQ.
     Route: 065
  2. ISAVUCONAZOLE [Suspect]
     Active Substance: ISAVUCONAZOLE
     Dosage: UNK UNK, UNKNOWN FREQ.
     Route: 065
  3. COLISTIN [Suspect]
     Active Substance: COLISTIN
     Indication: ENTEROBACTER INFECTION
     Dosage: UNK UNK, UNKNOWN FREQ.
     Route: 065
  4. TIGECYCLINE. [Suspect]
     Active Substance: TIGECYCLINE
     Indication: KLEBSIELLA BACTERAEMIA
     Dosage: UNK UNK, UNKNOWN FREQ.
     Route: 065
  5. ISAVUCONAZOLE [Suspect]
     Active Substance: ISAVUCONAZOLE
     Indication: ASPERGILLUS INFECTION
     Dosage: UNK UNK, UNKNOWN FREQ.
     Route: 065
  6. COLISTIN [Suspect]
     Active Substance: COLISTIN
     Indication: PROTEUS INFECTION
     Dosage: UNK UNK, UNKNOWN FREQ.
     Route: 065
  7. COLISTIN [Suspect]
     Active Substance: COLISTIN
     Indication: ESCHERICHIA INFECTION
  8. AMIKACIN. [Suspect]
     Active Substance: AMIKACIN
     Indication: KLEBSIELLA BACTERAEMIA
     Dosage: UNK UNK, UNKNOWN FREQ.
     Route: 065
  9. ISAVUCONAZOLE [Suspect]
     Active Substance: ISAVUCONAZOLE
     Dosage: UNK UNK, UNKNOWN FREQ.
     Route: 065
  10. TIGECYCLINE. [Suspect]
     Active Substance: TIGECYCLINE
     Indication: PROTEUS INFECTION
     Dosage: UNK UNK, UNKNOWN FREQ.
     Route: 065
  11. ISAVUCONAZOLE [Suspect]
     Active Substance: ISAVUCONAZOLE
     Dosage: UNK UNK, UNKNOWN FREQ.
     Route: 065
  12. COLISTIN [Suspect]
     Active Substance: COLISTIN
     Indication: ACINETOBACTER BACTERAEMIA
  13. TIGECYCLINE. [Suspect]
     Active Substance: TIGECYCLINE
     Indication: ENTEROBACTER INFECTION
     Dosage: UNK UNK, UNKNOWN FREQ.
     Route: 065
  14. ISAVUCONAZOLE [Suspect]
     Active Substance: ISAVUCONAZOLE
     Indication: MUCORMYCOSIS
     Dosage: UNK UNK, UNKNOWN FREQ.
     Route: 065
  15. AMIKACIN. [Suspect]
     Active Substance: AMIKACIN
     Indication: ENTEROBACTER INFECTION
     Dosage: UNK UNK, UNKNOWN FREQ.
     Route: 065
  16. COLISTIN [Suspect]
     Active Substance: COLISTIN
     Indication: KLEBSIELLA BACTERAEMIA
     Dosage: UNK UNK, UNKNOWN FREQ.
     Route: 065
  17. AMIKACIN. [Suspect]
     Active Substance: AMIKACIN
     Indication: PROTEUS INFECTION
     Dosage: UNK UNK, UNKNOWN FREQ.
     Route: 065
  18. TIGECYCLINE. [Suspect]
     Active Substance: TIGECYCLINE
     Indication: ESCHERICHIA INFECTION
  19. AMPHOTERICIN B, LIPOSOME [Suspect]
     Active Substance: AMPHOTERICIN B
     Indication: FUNGAL INFECTION
     Route: 065
  20. AMIKACIN. [Suspect]
     Active Substance: AMIKACIN
     Indication: ACINETOBACTER BACTERAEMIA
  21. TIGECYCLINE. [Suspect]
     Active Substance: TIGECYCLINE
     Indication: ACINETOBACTER BACTERAEMIA
  22. AMPHOTERICIN B, LIPOSOME [Suspect]
     Active Substance: AMPHOTERICIN B
     Route: 065
  23. AMIKACIN. [Suspect]
     Active Substance: AMIKACIN
     Indication: ESCHERICHIA INFECTION

REACTIONS (2)
  - Death [Fatal]
  - Intentional product use issue [Unknown]
